FAERS Safety Report 15404128 (Version 1)
Quarter: 2018Q3

REPORT INFORMATION
  Report Type: Spontaneous
  Country: US (occurrence: US)
  Receive Date: 20180919
  Receipt Date: 20180919
  Transmission Date: 20181010
  Serious: No
  Sender: FDA-Public Use
  Company Number: US-AVADEL SPECIALTY PHARMACEUTICALS, LLC-2018AVA00248

PATIENT
  Sex: Female

DRUGS (1)
  1. NOCTIVA [Suspect]
     Active Substance: DESMOPRESSIN ACETATE
     Dosage: UNK
     Route: 045

REACTIONS (8)
  - Rhinalgia [Recovered/Resolved]
  - Salivary hypersecretion [Recovered/Resolved]
  - Eye pain [Recovered/Resolved]
  - Ear discomfort [Recovered/Resolved]
  - Ear pain [Recovered/Resolved]
  - Rhinorrhoea [Recovered/Resolved]
  - Eye irritation [Recovered/Resolved]
  - Nasal discomfort [Recovered/Resolved]

NARRATIVE: CASE EVENT DATE: 20180805
